FAERS Safety Report 14493063 (Version 2)
Quarter: 2018Q1

REPORT INFORMATION
  Report Type: Spontaneous
  Country: US (occurrence: US)
  Receive Date: 20180206
  Receipt Date: 20180228
  Transmission Date: 20180509
  Serious: No
  Sender: FDA-Public Use
  Company Number: US-AMGEN-USASP2018015438

PATIENT
  Age: 36 Year
  Sex: Male

DRUGS (1)
  1. ENBREL [Suspect]
     Active Substance: ETANERCEPT
     Indication: PSORIASIS
     Dosage: 50 MG, QWK
     Route: 058
     Dates: start: 2011

REACTIONS (7)
  - Paranasal sinus discomfort [Recovered/Resolved]
  - Decreased appetite [Unknown]
  - Nasopharyngitis [Recovered/Resolved]
  - Blood immunoglobulin A decreased [Unknown]
  - Tooth infection [Unknown]
  - Constipation [Not Recovered/Not Resolved]
  - Sinusitis [Unknown]

NARRATIVE: CASE EVENT DATE: 2018
